FAERS Safety Report 4691031-5 (Version None)
Quarter: 2005Q2

REPORT INFORMATION
  Report Type: 
  Country: None (occurrence: None)
  Receive Date: 20050615
  Receipt Date: 20010530
  Transmission Date: 20051028
  Serious: Yes (Other)
  Sender: FDA-Public Use
  Company Number: 2001SE04991

PATIENT
  Age: 434 Month
  Sex: Female

DRUGS (4)
  1. PULMICORT [Suspect]
     Indication: ASTHMA
     Route: 055
     Dates: start: 19990216
  2. OXIS TURBUHALER [Concomitant]
     Indication: ASTHMA
     Route: 055
     Dates: start: 20000307
  3. AUGMENTIN '125' [Concomitant]
     Indication: INFECTION
     Dates: start: 20010101, end: 20010101
  4. CODEIN [Concomitant]
     Indication: INFECTION
     Dates: start: 20010101, end: 20010101

REACTIONS (5)
  - DISSEMINATED INTRAVASCULAR COAGULATION [None]
  - DRUG EXPOSURE DURING PREGNANCY [None]
  - PLACENTAL DISORDER [None]
  - PREGNANCY [None]
  - STILLBIRTH [None]
